FAERS Safety Report 7022478-X (Version None)
Quarter: 2010Q3

REPORT INFORMATION
  Report Type: 
  Country: None (occurrence: None)
  Receive Date: 20100930
  Receipt Date: 20100922
  Transmission Date: 20110219
  Serious: Yes (Other)
  Sender: FDA-Public Use
  Company Number: JP-ROCHE-727284

PATIENT
  Sex: Female
  Weight: 2.1 kg

DRUGS (2)
  1. OSELTAMIVIR [Suspect]
     Route: 064
     Dates: start: 20091114, end: 20091123
  2. FLU VACCINATION [Concomitant]
     Dosage: DRUG NAME: NEW FLU VACCINATION

REACTIONS (3)
  - ACNE INFANTILE [None]
  - DRUG EXPOSURE DURING PREGNANCY [None]
  - JAUNDICE NEONATAL [None]
